FAERS Safety Report 5605622-8 (Version None)
Quarter: 2008Q1

REPORT INFORMATION
  Report Type: 
  Country: None (occurrence: None)
  Receive Date: 20080129
  Receipt Date: 20080123
  Transmission Date: 20080703
  Serious: Yes (Life-Threatening, Hospitalization)
  Sender: FDA-Public Use
  Company Number: JP-BRACCO-000056

PATIENT
  Age: 63 Year
  Sex: Male
  Weight: 40 kg

DRUGS (10)
  1. PROHANCE [Suspect]
     Indication: DIAGNOSTIC PROCEDURE
     Route: 042
     Dates: start: 20071228, end: 20071228
  2. PROHANCE [Suspect]
     Indication: BRAIN NEOPLASM
     Route: 042
     Dates: start: 20071228, end: 20071228
  3. LACTEC [Concomitant]
     Route: 042
     Dates: start: 20071228, end: 20071228
  4. DORMICUM                           /00634101/ [Suspect]
     Indication: SEDATION
     Route: 042
     Dates: start: 20071228, end: 20071228
  5. PENTAGIN [Concomitant]
     Indication: PAIN
     Route: 042
     Dates: start: 20071228, end: 20071228
  6. VASOPRESSIN AND ANALOGUES [Concomitant]
     Route: 065
     Dates: end: 20080101
  7. SOLU-MEDROL [Concomitant]
     Route: 065
     Dates: start: 20071230, end: 20071230
  8. SOLU-MEDROL [Concomitant]
     Route: 065
     Dates: start: 20071231, end: 20071231
  9. SOLU-MEDROL [Concomitant]
     Route: 065
     Dates: start: 20080101, end: 20080101
  10. OXYGEN [Concomitant]
     Route: 055

REACTIONS (2)
  - ANAPHYLACTIC SHOCK [None]
  - RESPIRATORY DEPRESSION [None]
